FAERS Safety Report 6211812-6 (Version None)
Quarter: 2009Q2

REPORT INFORMATION
  Report Type: 
  Country: None (occurrence: None)
  Receive Date: 20090602
  Receipt Date: 20090528
  Transmission Date: 20091009
  Serious: Yes (Other)
  Sender: FDA-Public Use
  Company Number: US-MERCK-0905USA02960

PATIENT
  Age: 14 Year
  Sex: Female
  Weight: 55 kg

DRUGS (5)
  1. SINGULAIR [Suspect]
     Route: 048
     Dates: start: 20090419, end: 20090424
  2. CALCIUM (UNSPECIFIED) [Concomitant]
     Route: 065
  3. XYZAL [Concomitant]
     Route: 065
  4. ALBUTEROL [Concomitant]
     Route: 065
  5. VITAMINS (UNSPECIFIED) [Concomitant]
     Route: 065

REACTIONS (1)
  - SUICIDAL IDEATION [None]
